FAERS Safety Report 22782447 (Version 3)
Quarter: 2023Q4

REPORT INFORMATION
  Report Type: Report from Study
  Country: US (occurrence: US)
  Receive Date: 20230803
  Receipt Date: 20231116
  Transmission Date: 20240110
  Serious: Yes (Hospitalization)
  Sender: FDA-Public Use
  Company Number: US-JNJFOC-20230800173

PATIENT
  Sex: Male
  Weight: 41.1 kg

DRUGS (5)
  1. INFLIXIMAB [Suspect]
     Active Substance: INFLIXIMAB
     Indication: Inflammatory bowel disease
     Route: 041
     Dates: start: 20140214, end: 20200226
  2. KEPPRA [Concomitant]
     Active Substance: LEVETIRACETAM
  3. AZATHIOPRINE [Concomitant]
     Active Substance: AZATHIOPRINE
  4. ALLOPURINOL [Concomitant]
     Active Substance: ALLOPURINOL
  5. FOLIC ACID [Concomitant]
     Active Substance: FOLIC ACID

REACTIONS (1)
  - Sickle cell anaemia with crisis [Recovered/Resolved with Sequelae]

NARRATIVE: CASE EVENT DATE: 20221023
